FAERS Safety Report 10777204 (Version 1)
Quarter: 2015Q1

REPORT INFORMATION
  Report Type: Report from Study
  Country: CL (occurrence: CL)
  Receive Date: 20150209
  Receipt Date: 20150209
  Transmission Date: 20150721
  Serious: Yes (Hospitalization)
  Sender: FDA-Public Use
  Company Number: PHHY2015CL015344

PATIENT
  Sex: Male

DRUGS (15)
  1. CLOZARIL [Suspect]
     Active Substance: CLOZAPINE
     Indication: OVERPROTECTIVE PARENT
  2. CLOZARIL [Suspect]
     Active Substance: CLOZAPINE
     Indication: DEPENDENCE
  3. CLOZARIL [Suspect]
     Active Substance: CLOZAPINE
     Indication: DISABILITY
  4. CLOZARIL [Suspect]
     Active Substance: CLOZAPINE
     Indication: ADJUSTMENT DISORDER WITH DEPRESSED MOOD
  5. CLOZARIL [Suspect]
     Active Substance: CLOZAPINE
     Indication: BORDERLINE PERSONALITY DISORDER
  6. CLOZARIL [Suspect]
     Active Substance: CLOZAPINE
     Indication: DEPENDENT PERSONALITY DISORDER
  7. CLOZARIL [Suspect]
     Active Substance: CLOZAPINE
     Indication: ALCOHOLISM
  8. CLOZARIL [Suspect]
     Active Substance: CLOZAPINE
     Indication: SOCIAL PROBLEM
  9. CLOZARIL [Suspect]
     Active Substance: CLOZAPINE
     Indication: POLYSUBSTANCE DEPENDENCE
     Dosage: 1.5 DF AT NIGHT (FORMULATION: 100MG)
     Route: 065
     Dates: start: 20141018
  10. CLOZARIL [Suspect]
     Active Substance: CLOZAPINE
     Indication: PERSONALITY DISORDER
  11. CLOZARIL [Suspect]
     Active Substance: CLOZAPINE
     Indication: DRUG DEPENDENCE
  12. CLOZARIL [Suspect]
     Active Substance: CLOZAPINE
     Indication: NICOTINE DEPENDENCE
  13. CLOZARIL [Suspect]
     Active Substance: CLOZAPINE
     Indication: WITHDRAWAL SYNDROME
  14. CLOZARIL [Suspect]
     Active Substance: CLOZAPINE
     Indication: STRESS
  15. CLOZARIL [Suspect]
     Active Substance: CLOZAPINE
     Indication: IMPULSIVE BEHAVIOUR

REACTIONS (4)
  - Hyperthyroidism [Unknown]
  - Off label use [Unknown]
  - Hypothyroidism [Unknown]
  - Mental disorder [Unknown]
